FAERS Safety Report 8773752 (Version 1)
Quarter: 2012Q4

REPORT INFORMATION
  Report Type: 
  Country: None (occurrence: US)
  Receive Date: 20120907
  Receipt Date: 20120907
  Transmission Date: 20130627
  Serious: Yes (Other)
  Sender: FDA-Public Use
  Company Number: US-ROCHE-1116342

PATIENT

DRUGS (1)
  1. ROACCUTANE [Suspect]
     Indication: ACNE

REACTIONS (38)
  - Herpes simplex [Unknown]
  - Keratoconus [Unknown]
  - Optic neuritis [Unknown]
  - Cataract [Unknown]
  - Vision blurred [Unknown]
  - Refraction disorder [Unknown]
  - Accommodation disorder [Unknown]
  - Contact lens intolerance [Unknown]
  - Keratitis [Unknown]
  - Corneal opacity [Unknown]
  - Ulcerative keratitis [Unknown]
  - Corneal infiltrates [Unknown]
  - Corneal neovascularisation [Unknown]
  - Conjunctivitis [Unknown]
  - Conjunctival haemorrhage [Unknown]
  - Eyelid oedema [Unknown]
  - Eyelid ptosis [Unknown]
  - Photosensitivity reaction [Unknown]
  - Dry eye [Unknown]
  - Intracranial pressure increased [Unknown]
  - Visual field defect [Unknown]
  - Blindness cortical [Unknown]
  - Night blindness [Unknown]
  - Photophobia [Unknown]
  - Vascular occlusion [Unknown]
  - Vitreous disorder [Unknown]
  - Retinal detachment [Unknown]
  - Retinal vasculitis [Unknown]
  - Retinal haemorrhage [Unknown]
  - Retinal oedema [Unknown]
  - Diplopia [Unknown]
  - Iritis [Unknown]
  - Pupillary disorder [Unknown]
  - Angioedema [Unknown]
  - Glaucoma [Unknown]
  - Scleritis [Unknown]
  - Colour blindness acquired [Unknown]
  - Lacrimation increased [Unknown]
